FAERS Safety Report 5009162-9 (Version None)
Quarter: 2006Q2

REPORT INFORMATION
  Report Type: 
  Country: None (occurrence: None)
  Receive Date: 20060518
  Receipt Date: 20060508
  Transmission Date: 20061013
  Serious: Yes (Other)
  Sender: FDA-Public Use
  Company Number: S06-USA-01835-01

PATIENT
  Age: 55 Year
  Sex: Female

DRUGS (5)
  1. CELEXA [Suspect]
     Indication: DEPRESSION
     Dosage: 40 MG QD PO
     Route: 048
     Dates: start: 20060201, end: 20060401
  2. CELEXA [Suspect]
     Indication: DEPRESSION
     Dosage: 10 MG QOD PO
     Route: 048
     Dates: start: 20060401
  3. CELEXA [Suspect]
     Indication: DEPRESSION
     Dosage: 10 MG QOD PO
     Route: 048
     Dates: start: 20040101, end: 20051227
  4. CELEXA [Suspect]
     Indication: DEPRESSION
     Dosage: 20 MG QOD PO
     Route: 048
     Dates: start: 20040101, end: 20051227
  5. CELEXA [Suspect]
     Indication: DEPRESSION
     Dosage: 30 MG QD PO
     Route: 048
     Dates: start: 20051228, end: 20060201

REACTIONS (5)
  - AMENORRHOEA [None]
  - DYSFUNCTIONAL UTERINE BLEEDING [None]
  - DYSPNOEA [None]
  - IRON DEFICIENCY ANAEMIA [None]
  - MENORRHAGIA [None]
